FAERS Safety Report 20535971 (Version 2)
Quarter: 2022Q1

REPORT INFORMATION
  Report Type: Report from Study
  Country: CN (occurrence: CN)
  Receive Date: 20220302
  Receipt Date: 20220326
  Transmission Date: 20220423
  Serious: Yes (Hospitalization, Other)
  Sender: FDA-Public Use
  Company Number: CN-BRISTOL-MYERS SQUIBB COMPANY-BMS-2022-027970

PATIENT
  Age: 59 Year
  Sex: Male

DRUGS (2)
  1. NIVOLUMAB [Suspect]
     Active Substance: NIVOLUMAB
     Indication: Gastric cancer
     Dosage: 240 MILLIGRAM, Q3WK
     Route: 041
     Dates: start: 20210701
  2. NIVOLUMAB\RELATLIMAB-RMBW [Suspect]
     Active Substance: NIVOLUMAB\RELATLIMAB-RMBW
     Indication: Gastric cancer
     Dosage: 240 MILLIGRAM, Q3WK
     Route: 041
     Dates: start: 20210701

REACTIONS (4)
  - Malignant neoplasm progression [Unknown]
  - Eating disorder [Unknown]
  - Ascites [Unknown]
  - Off label use [Unknown]

NARRATIVE: CASE EVENT DATE: 20220211
